FAERS Safety Report 14160511 (Version 1)
Quarter: 2017Q4

REPORT INFORMATION
  Report Type: Spontaneous
  Country: GB (occurrence: GB)
  Receive Date: 20171104
  Receipt Date: 20171104
  Transmission Date: 20180321
  Serious: Yes (Hospitalization)
  Sender: FDA-Public Use
  Company Number: GB-AUROBINDO-AUR-APL-2017-42863

PATIENT
  Age: 69 Year
  Sex: Male

DRUGS (2)
  1. LAMIVUDINE FILM-COATED TABLETS [Suspect]
     Active Substance: LAMIVUDINE
     Indication: HEPATITIS B
     Dosage: 100 MG, ONCE A DAY
     Route: 048
     Dates: start: 20151217
  2. VALCYTE [Suspect]
     Active Substance: VALGANCICLOVIR HYDROCHLORIDE
     Indication: CYTOMEGALOVIRUS CHORIORETINITIS
     Dosage: 450 MG, TWO TIMES A DAY
     Route: 048
     Dates: start: 20170823

REACTIONS (2)
  - Blindness unilateral [Unknown]
  - Neutropenia [Not Recovered/Not Resolved]
